FAERS Safety Report 6322387-5 (Version None)
Quarter: 2009Q3

REPORT INFORMATION
  Report Type: 
  Country: None (occurrence: None)
  Receive Date: 20090824
  Receipt Date: 20090211
  Transmission Date: 20100115
  Serious: No
  Sender: FDA-Public Use
  Company Number: US-ABBOTT-09P-163-0503385-00

PATIENT
  Sex: Female
  Weight: 96.248 kg

DRUGS (6)
  1. NIASPAN [Suspect]
     Indication: BLOOD CHOLESTEROL
     Dates: start: 20080103
  2. NIASPAN [Suspect]
     Dates: start: 20090105
  3. NIASPAN [Suspect]
     Dates: start: 20090126
  4. STATIN [Suspect]
     Indication: DRUG USE FOR UNKNOWN INDICATION
     Dosage: NOT REPORTED
  5. CRESTOR [Suspect]
     Indication: BLOOD CHOLESTEROL
     Dosage: NOT REPORTED
  6. ZOCOR [Suspect]
     Indication: BLOOD CHOLESTEROL
     Dosage: NOT REPORTED

REACTIONS (4)
  - DIARRHOEA [None]
  - FLUSHING [None]
  - MYALGIA [None]
  - OEDEMA PERIPHERAL [None]
